FAERS Safety Report 18741776 (Version 1)
Quarter: 2021Q1

REPORT INFORMATION
  Report Type: Spontaneous
  Country: US (occurrence: US)
  Receive Date: 20210114
  Receipt Date: 20210114
  Transmission Date: 20210419
  Serious: No
  Sender: FDA-Public Use
  Company Number: US-AERIE-2020-001834

PATIENT

DRUGS (1)
  1. RHOPRESSA [Suspect]
     Active Substance: NETARSUDIL MESYLATE
     Indication: PRODUCT USED FOR UNKNOWN INDICATION
     Dosage: UNK
     Route: 047
     Dates: start: 20201028

REACTIONS (3)
  - Rash [Unknown]
  - Eye pruritus [Not Recovered/Not Resolved]
  - Iris discolouration [Not Recovered/Not Resolved]

NARRATIVE: CASE EVENT DATE: 20201110
